FAERS Safety Report 8428168-0 (Version None)
Quarter: 2012Q2

REPORT INFORMATION
  Report Type: 
  Country: None (occurrence: None)
  Receive Date: 20120611
  Receipt Date: 20120525
  Transmission Date: 20120825
  Serious: No
  Sender: FDA-Public Use
  Company Number: US-ASTRAZENECA-2007UW14847

PATIENT
  Age: 72 Year
  Sex: Female
  Weight: 61.2 kg

DRUGS (1)
  1. TOPROL-XL [Suspect]
     Indication: HYPERTENSION
     Route: 048

REACTIONS (5)
  - BLOOD PRESSURE INADEQUATELY CONTROLLED [None]
  - RENAL CYST [None]
  - CHEST PAIN [None]
  - LIMB INJURY [None]
  - NAUSEA [None]
